FAERS Safety Report 18556837 (Version 1)
Quarter: 2020Q4

REPORT INFORMATION
  Report Type: Report from Study
  Country: TW (occurrence: TW)
  Receive Date: 20201128
  Receipt Date: 20201128
  Transmission Date: 20210114
  Serious: Yes (Other)
  Sender: FDA-Public Use
  Company Number: NVSC2020TW316459

PATIENT
  Age: 37 Year
  Sex: Male

DRUGS (1)
  1. ENTRESTO [Suspect]
     Active Substance: SACUBITRIL\VALSARTAN
     Indication: CARDIAC FAILURE
     Dosage: UNK UNK, PRN
     Route: 065

REACTIONS (7)
  - Inappropriate schedule of product administration [Unknown]
  - Gait disturbance [Unknown]
  - Dyspnoea [Unknown]
  - General physical health deterioration [Unknown]
  - Anxiety [Unknown]
  - Nephrolithiasis [Unknown]
  - Fatigue [Unknown]
